FAERS Safety Report 4404457-1 (Version None)
Quarter: 2004Q3

REPORT INFORMATION
  Report Type: 
  Country: None (occurrence: None)
  Receive Date: 20040720
  Receipt Date: 20040708
  Transmission Date: 20050211
  Serious: Yes (Hospitalization)
  Sender: FDA-Public Use
  Company Number: 2004IM000346

PATIENT
  Age: 68 Year
  Sex: Male

DRUGS (8)
  1. ADVAFERON (A643_INTERERON ALFACON-1 [Suspect]
     Indication: HEPATITIS C
     Dosage: 18 MU;QD;SUBCUTANEOUS
     Route: 058
     Dates: start: 20020612, end: 20020822
  2. PROHEPARUM [Concomitant]
  3. URSODEOXYCHOLIC ACID [Concomitant]
  4. ALLOPURINOL [Concomitant]
  5. WASSER V GRAN [Concomitant]
  6. ZOPLICLONE [Concomitant]
  7. DISOPYRAMIDE [Concomitant]
  8. MAGNESIUM OXIDE [Concomitant]

REACTIONS (7)
  - ANOREXIA [None]
  - DEPRESSED MOOD [None]
  - MALAISE [None]
  - PLATELET COUNT DECREASED [None]
  - RED BLOOD CELL COUNT DECREASED [None]
  - WEIGHT DECREASED [None]
  - WHITE BLOOD CELL COUNT DECREASED [None]
